FAERS Safety Report 4840536-2 (Version None)
Quarter: 2005Q4

REPORT INFORMATION
  Report Type: 
  Country: None (occurrence: None)
  Receive Date: 20051130
  Receipt Date: 20050926
  Transmission Date: 20060501
  Serious: No
  Sender: FDA-Public Use
  Company Number: US-BRISTOL-MYERS SQUIBB COMPANY-13122270

PATIENT
  Age: 60 Year
  Sex: Male

DRUGS (1)
  1. ERBITUX [Suspect]
     Dosage: HELD ON 01-SEP-2005 AND 08-SEP-2005.
     Route: 042
     Dates: start: 20050101, end: 20050101

REACTIONS (1)
  - RASH [None]
